FAERS Safety Report 23098341 (Version 1)
Quarter: 2023Q4

REPORT INFORMATION
  Report Type: Spontaneous
  Country: US (occurrence: US)
  Receive Date: 20231023
  Receipt Date: 20231023
  Transmission Date: 20240110
  Serious: No
  Sender: FDA-Public Use
  Company Number: US-ELI_LILLY_AND_COMPANY-US202310012429

PATIENT
  Sex: Male

DRUGS (1)
  1. PROZAC [Suspect]
     Active Substance: FLUOXETINE HYDROCHLORIDE
     Indication: Panic disorder
     Dosage: UNK, UNKNOWN
     Route: 065
     Dates: start: 201201, end: 201407

REACTIONS (3)
  - Emotional disorder [Unknown]
  - Libido decreased [Unknown]
  - Erectile dysfunction [Unknown]
